FAERS Safety Report 4851622-5 (Version None)
Quarter: 2005Q4

REPORT INFORMATION
  Report Type: 
  Country: None (occurrence: None)
  Receive Date: 20051212
  Receipt Date: 20051201
  Transmission Date: 20060501
  Serious: Yes (Death, Hospitalization)
  Sender: FDA-Public Use
  Company Number: US-MERCK-0512USA00511

PATIENT
  Age: 48 Year
  Sex: Male

DRUGS (9)
  1. DECADRON [Suspect]
     Indication: MULTIPLE MYELOMA
     Route: 048
  2. CYCLOPHOSPHAMIDE [Suspect]
     Indication: MULTIPLE MYELOMA
     Route: 065
  3. CISPLATIN [Suspect]
     Indication: MULTIPLE MYELOMA
     Route: 065
  4. MELPHALAN [Suspect]
     Indication: MULTIPLE MYELOMA
     Route: 065
  5. PREDNISONE [Suspect]
     Indication: MULTIPLE MYELOMA
     Route: 065
  6. VINCRISTINE SULFATE [Suspect]
     Indication: MULTIPLE MYELOMA
     Route: 065
  7. DOXORUBICIN [Suspect]
     Indication: MULTIPLE MYELOMA
     Route: 065
  8. THALIDOMIDE [Suspect]
     Indication: MULTIPLE MYELOMA
     Route: 065
  9. METHYLPREDNISOLONE [Suspect]
     Indication: MULTIPLE MYELOMA
     Route: 065

REACTIONS (3)
  - BACTERIAL SEPSIS [None]
  - CARDIAC ARREST [None]
  - SKIN NODULE [None]
